FAERS Safety Report 5153981-5 (Version None)
Quarter: 2006Q4

REPORT INFORMATION
  Report Type: 
  Country: None (occurrence: None)
  Receive Date: 20061120
  Receipt Date: 20061113
  Transmission Date: 20070319
  Serious: Yes (Other)
  Sender: FDA-Public Use
  Company Number: US-GLAXOSMITHKLINE-A0627286A

PATIENT
  Age: 62 Year
  Sex: Male

DRUGS (10)
  1. ADVAIR DISKUS 100/50 [Suspect]
     Indication: CHRONIC OBSTRUCTIVE PULMONARY DISEASE
     Dosage: 1PUFF TWICE PER DAY
     Route: 055
     Dates: start: 20010101
  2. SPIRIVA [Concomitant]
  3. PRAVACHOL [Concomitant]
  4. CORDARONE [Concomitant]
  5. SINGULAIR [Concomitant]
  6. DIOVAN [Concomitant]
  7. ASPIRIN [Concomitant]
  8. NICOMIDE [Concomitant]
  9. TRAVATAN [Concomitant]
  10. VITAMINS [Concomitant]

REACTIONS (6)
  - CATARACT [None]
  - EYE PAIN [None]
  - GLAUCOMA [None]
  - INGROWN HAIR [None]
  - INTRAOCULAR PRESSURE INCREASED [None]
  - VISUAL ACUITY REDUCED [None]
